FAERS Safety Report 10442555 (Version 3)
Quarter: 2014Q3

REPORT INFORMATION
  Report Type: Spontaneous
  Country: BR (occurrence: BR)
  Receive Date: 20140909
  Receipt Date: 20140916
  Transmission Date: 20150326
  Serious: Yes (Other)
  Sender: FDA-Public Use
  Company Number: BR-PFIZER INC-2014231567

PATIENT
  Age: 52 Year
  Sex: Female
  Weight: 86 kg

DRUGS (6)
  1. CELEBRA [Suspect]
     Active Substance: CELECOXIB
     Indication: ARTHRALGIA
  2. CELEBRA [Suspect]
     Active Substance: CELECOXIB
     Indication: SACROILIITIS
  3. PANTOPRAZOLE [Concomitant]
     Active Substance: PANTOPRAZOLE SODIUM
     Indication: GASTRIC DISORDER
     Dosage: 40 MG, 2X/DAY
  4. TOPIRAMATE. [Concomitant]
     Active Substance: TOPIRAMATE
     Dosage: UNK
  5. SERTRALINE HYDROCHLORIDE. [Concomitant]
     Active Substance: SERTRALINE HYDROCHLORIDE
     Dosage: UNK
  6. CELEBRA [Suspect]
     Active Substance: CELECOXIB
     Indication: CYST
     Dosage: 1 CAPSULE (200MG), DAILY
     Route: 048
     Dates: start: 2009, end: 2014

REACTIONS (3)
  - Toothache [Recovering/Resolving]
  - Off label use [Not Recovered/Not Resolved]
  - Sensitivity of teeth [Unknown]

NARRATIVE: CASE EVENT DATE: 2009
